FAERS Safety Report 16692805 (Version 1)
Quarter: 2019Q3

REPORT INFORMATION
  Report Type: Spontaneous
  Country: US (occurrence: US)
  Receive Date: 20190812
  Receipt Date: 20190812
  Transmission Date: 20191004
  Serious: No
  Sender: FDA-Public Use
  Company Number: US-ASTRAZENECA-2019SF08702

PATIENT
  Age: 23543 Day
  Sex: Female

DRUGS (2)
  1. BYETTA [Suspect]
     Active Substance: EXENATIDE
     Indication: DIABETES MELLITUS
     Dosage: 10 MCG TWICE DAILY, IN THE MORNING AND AT NIGHT
     Route: 058
  2. HUMULIN NOS [Concomitant]
     Active Substance: INSULIN HUMAN
     Indication: DIABETES MELLITUS

REACTIONS (11)
  - Blood glucose decreased [Unknown]
  - Intentional device misuse [Unknown]
  - Device damage [Unknown]
  - Hypersensitivity [Unknown]
  - Speech disorder [Recovered/Resolved]
  - Decreased appetite [Unknown]
  - Arthritis [Not Recovered/Not Resolved]
  - Vomiting [Recovered/Resolved]
  - Weight decreased [Unknown]
  - Oropharyngeal pain [Unknown]
  - Hypertension [Unknown]

NARRATIVE: CASE EVENT DATE: 20190720
